FAERS Safety Report 10786168 (Version 1)
Quarter: 2015Q1

REPORT INFORMATION
  Report Type: Spontaneous
  Country: US (occurrence: US)
  Receive Date: 20150211
  Receipt Date: 20150211
  Transmission Date: 20150721
  Serious: Yes (Death, Other)
  Sender: FDA-Public Use
  Company Number: US-JNJFOC-20150207879

PATIENT
  Age: 64 Year
  Sex: Male

DRUGS (2)
  1. LEXAPRO [Concomitant]
     Active Substance: ESCITALOPRAM OXALATE
  2. IMBRUVICA [Suspect]
     Active Substance: IBRUTINIB
     Indication: LYMPHOMA
     Route: 048
     Dates: start: 20140820, end: 20140930

REACTIONS (4)
  - Respiratory failure [Fatal]
  - Malnutrition [Unknown]
  - Acute kidney injury [Unknown]
  - Fungaemia [Unknown]

NARRATIVE: CASE EVENT DATE: 20140930
